FAERS Safety Report 5503107-0 (Version None)
Quarter: 2007Q4

REPORT INFORMATION
  Report Type: 
  Country: None (occurrence: None)
  Receive Date: 20071029
  Receipt Date: 20071029
  Transmission Date: 20080405
  Serious: Yes (Other)
  Sender: FDA-Public Use
  Company Number: None

PATIENT
  Sex: Female
  Weight: 95.2554 kg

DRUGS (1)
  1. BUPROPION HCL [Suspect]
     Indication: DEPRESSION
     Dosage: 1 TABLET  DAILY PO
     Route: 048
     Dates: start: 20070209, end: 20070315

REACTIONS (2)
  - CONDITION AGGRAVATED [None]
  - DEPRESSION [None]
